FAERS Safety Report 5595136-6 (Version None)
Quarter: 2008Q1

REPORT INFORMATION
  Report Type: 
  Country: None (occurrence: None)
  Receive Date: 20080117
  Receipt Date: 20071227
  Transmission Date: 20080703
  Serious: No
  Sender: FDA-Public Use
  Company Number: US-BOEHRINGER INGELHEIM PHARMACEUTICALS, INC.-2007-BP-26692BP

PATIENT
  Sex: Male

DRUGS (25)
  1. COMBIVENT [Suspect]
     Indication: CHRONIC OBSTRUCTIVE PULMONARY DISEASE
     Route: 055
  2. COMBIVENT [Suspect]
     Indication: ASTHMA
  3. COMBIVENT [Suspect]
     Indication: EMPHYSEMA
  4. COMBIVENT [Suspect]
     Indication: BRONCHITIS CHRONIC
  5. COMBIVENT [Suspect]
     Indication: DYSPNOEA
  6. ALBUTEROL [Concomitant]
     Indication: CHRONIC OBSTRUCTIVE PULMONARY DISEASE
     Route: 055
  7. ADVAIR DISKUS 100/50 [Concomitant]
     Indication: ASTHMA
     Route: 055
  8. METOPROLOL TARTRATE [Concomitant]
     Indication: BLOOD PRESSURE
  9. FUROSEMIDE [Concomitant]
     Indication: FLUID RETENTION
  10. CRESTOL [Concomitant]
     Indication: BLOOD CHOLESTEROL
  11. ZOLPIDEM [Concomitant]
     Indication: SLEEP APNOEA SYNDROME
  12. REQUIP [Concomitant]
     Indication: RESTLESS LEGS SYNDROME
  13. OXYCOD/APAP [Concomitant]
     Indication: ARTHRITIS
  14. OMEGA-3 VILATMINS [Concomitant]
     Indication: BLOOD CHOLESTEROL
  15. ASPIRIN [Concomitant]
     Indication: HEADACHE
  16. ASPIRIN [Concomitant]
     Indication: PAIN
  17. ASPIRIN [Concomitant]
     Indication: CHEST PAIN
  18. ASPIRIN [Concomitant]
     Indication: PALPITATIONS
  19. ASPIRIN [Concomitant]
     Indication: ARTHRALGIA
  20. POTASSIUM CHLORIDE [Concomitant]
     Indication: MUSCLE SPASMS
  21. POTASSIUM CHLORIDE [Concomitant]
     Indication: DEHYDRATION
  22. POTASSIUM CHLORIDE [Concomitant]
     Indication: MINERAL SUPPLEMENTATION
  23. XANAX [Concomitant]
     Indication: ANXIETY
  24. ALPRAZOLAM [Concomitant]
     Indication: DEPRESSION
  25. FLUOROURACIL [Concomitant]
     Indication: SKIN CANCER
     Dosage: 5 %
     Route: 061

REACTIONS (11)
  - BACK PAIN [None]
  - CHOKING [None]
  - COUGH [None]
  - DRUG INEFFECTIVE [None]
  - DYSGEUSIA [None]
  - DYSPNOEA [None]
  - GAIT DISTURBANCE [None]
  - INCREASED UPPER AIRWAY SECRETION [None]
  - INSOMNIA [None]
  - TEMPERATURE INTOLERANCE [None]
  - WHEEZING [None]
